FAERS Safety Report 14362086 (Version 5)
Quarter: 2019Q3

REPORT INFORMATION
  Report Type: Spontaneous
  Country: JP (occurrence: JP)
  Receive Date: 20180108
  Receipt Date: 20190918
  Transmission Date: 20191004
  Serious: Yes (Other)
  Sender: FDA-Public Use
  Company Number: JP-ROCHE-2051819

PATIENT
  Age: 51 Year
  Sex: Female

DRUGS (2)
  1. XOLAIR [Suspect]
     Active Substance: OMALIZUMAB
     Indication: CHRONIC EOSINOPHILIC RHINOSINUSITIS
  2. XOLAIR [Suspect]
     Active Substance: OMALIZUMAB
     Indication: ASTHMA
     Route: 058
     Dates: start: 20120229, end: 201605

REACTIONS (9)
  - Musculoskeletal stiffness [Unknown]
  - Off label use [Unknown]
  - C-reactive protein increased [Unknown]
  - Immobile [Unknown]
  - Musculoskeletal pain [Unknown]
  - Polymyalgia rheumatica [Recovering/Resolving]
  - Red blood cell sedimentation rate increased [Unknown]
  - Myalgia [Unknown]
  - Pyrexia [Unknown]

NARRATIVE: CASE EVENT DATE: 20160329
